FAERS Safety Report 20255037 (Version 1)
Quarter: 2021Q4

REPORT INFORMATION
  Report Type: Other
  Country: US (occurrence: None)
  Receive Date: 20211230
  Receipt Date: 20211230
  Transmission Date: 20220303
  Serious: Yes (Hospitalization, Other)
  Sender: FDA-Public Use
  Company Number: US-ROCHE-2974248

PATIENT
  Age: 36 Year
  Sex: Male

DRUGS (1)
  1. OCREVUS [Suspect]
     Active Substance: OCRELIZUMAB
     Indication: Multiple sclerosis
     Dosage: 300MG ON DAY1 AND DAY15, 600MG EVERY 6 MONTHS
     Route: 042
     Dates: start: 20211110

REACTIONS (7)
  - Bone pain [Unknown]
  - Seizure [Unknown]
  - Hallucination, auditory [Not Recovered/Not Resolved]
  - Confusional state [Unknown]
  - Insomnia [Unknown]
  - Psychotic disorder [Unknown]
  - Hallucination [Unknown]

NARRATIVE: CASE EVENT DATE: 20211124
